FAERS Safety Report 5933505-2 (Version None)
Quarter: 2008Q4

REPORT INFORMATION
  Report Type: 
  Country: None (occurrence: None)
  Receive Date: 20081029
  Receipt Date: 20081023
  Transmission Date: 20090506
  Serious: Yes (Death, Other)
  Sender: FDA-Public Use
  Company Number: GB-RANBAXY-2008RR-17787

PATIENT
  Age: 70 Year
  Sex: Female
  Weight: 60 kg

DRUGS (3)
  1. FLUOXETINE [Suspect]
     Indication: DEPRESSION
     Dosage: 60 MG, UNK
     Route: 048
     Dates: start: 20070201
  2. LANSOPRAZOLE [Concomitant]
     Indication: DYSPEPSIA
     Route: 048
  3. MAGNESIUM SULFATE [Concomitant]

REACTIONS (4)
  - ANTIDEPRESSANT DRUG LEVEL ABOVE THERAPEUTIC [None]
  - CONFUSIONAL STATE [None]
  - DEATH [None]
  - PNEUMONIA ASPIRATION [None]
